FAERS Safety Report 13651542 (Version 1)
Quarter: 2017Q2

REPORT INFORMATION
  Report Type: Spontaneous
  Country: FR (occurrence: FR)
  Receive Date: 20170614
  Receipt Date: 20170614
  Transmission Date: 20170830
  Serious: Yes (Hospitalization)
  Sender: FDA-Public Use
  Company Number: FR-009507513-1706FRA003119

PATIENT
  Age: 88 Year
  Sex: Male

DRUGS (7)
  1. LERCANIDIPINE [Concomitant]
     Active Substance: LERCANIDIPINE
     Dosage: UNK
  2. KARDEGIC [Interacting]
     Active Substance: ASPIRIN LYSINE
     Dosage: 160 MG, QD
     Route: 048
     Dates: start: 20170313, end: 20170329
  3. PANTOPRAZOLE [Concomitant]
     Active Substance: PANTOPRAZOLE
     Dosage: UNK
  4. MADOPAR [Concomitant]
     Active Substance: BENSERAZIDE HYDROCHLORIDE\LEVODOPA
     Dosage: UNK
  5. NORSET [Suspect]
     Active Substance: MIRTAZAPINE
     Dosage: 1 DF, QD
     Route: 048
     Dates: end: 20170329
  6. FINASTERIDE. [Concomitant]
     Active Substance: FINASTERIDE
     Dosage: UNK
  7. DACRYOSERUM [Concomitant]
     Active Substance: BORIC ACID\SODIUM BORATE
     Dosage: UNK

REACTIONS (2)
  - Cerebral haemorrhage [Recovered/Resolved]
  - Drug interaction [Recovered/Resolved]

NARRATIVE: CASE EVENT DATE: 20170329
